FAERS Safety Report 5992104-7 (Version None)
Quarter: 2008Q4

REPORT INFORMATION
  Report Type: 
  Country: None (occurrence: None)
  Receive Date: 20081211
  Receipt Date: 20081201
  Transmission Date: 20090506
  Serious: Yes (Hospitalization, Other)
  Sender: FDA-Public Use
  Company Number: FR-AMGEN-US322347

PATIENT
  Sex: Female
  Weight: 65 kg

DRUGS (12)
  1. ENBREL [Suspect]
     Indication: RHEUMATOID ARTHRITIS
     Route: 058
     Dates: start: 20020921, end: 20080610
  2. METHOTREXATE [Suspect]
     Indication: RHEUMATOID ARTHRITIS
     Dosage: 10 MG TOTAL WEEKLY
     Route: 048
     Dates: start: 20070101
  3. CORTANCYL [Concomitant]
     Indication: RHEUMATOID ARTHRITIS
     Dosage: 5 MG TO 10 MG DAILY
     Route: 048
     Dates: start: 20070101
  4. PREVISCAN [Concomitant]
     Dosage: UNKNOWN
     Route: 048
  5. ALDACTONE [Concomitant]
     Dosage: UNKNOWN
     Route: 048
  6. FOSAMAX [Concomitant]
     Dosage: UNKNOWN
     Route: 048
     Dates: end: 20080615
  7. COLECALCIFEROL [Concomitant]
     Dosage: UNKNOWN
     Route: 048
  8. OMEPRAZOLE [Concomitant]
     Dosage: UNKNOWN
  9. FORLAX [Concomitant]
     Dosage: UNKNOWN
     Route: 048
  10. TRANXENE [Concomitant]
     Dosage: UNKNOWN
  11. CALCIUM CARBONATE [Concomitant]
     Dosage: UNKNOWN
     Route: 048
  12. ZOMETA [Concomitant]
     Dates: start: 20080616

REACTIONS (4)
  - BREAST CANCER FEMALE [None]
  - CYTOLYTIC HEPATITIS [None]
  - FOOT OPERATION [None]
  - VITAMIN D DEFICIENCY [None]
